FAERS Safety Report 6618910-3 (Version None)
Quarter: 2010Q1

REPORT INFORMATION
  Report Type: 
  Country: None (occurrence: None)
  Receive Date: 20100302
  Receipt Date: 20100218
  Transmission Date: 20100710
  Serious: Yes (Other)
  Sender: FDA-Public Use
  Company Number: 20108268

PATIENT

DRUGS (1)
  1. LIORESAL [Suspect]
     Indication: MUSCLE SPASTICITY
     Dosage: DAILY, INTRATHECAL
     Route: 037

REACTIONS (5)
  - MEDICAL DEVICE SITE REACTION [None]
  - SKIN ATROPHY [None]
  - SKIN DISORDER [None]
  - SKIN IRRITATION [None]
  - WOUND DEHISCENCE [None]
